FAERS Safety Report 7555639-1 (Version None)
Quarter: 2011Q2

REPORT INFORMATION
  Report Type: 
  Country: None (occurrence: None)
  Receive Date: 20110617
  Receipt Date: 20090303
  Transmission Date: 20111010
  Serious: Yes (Disabling, Other)
  Sender: FDA-Public Use
  Company Number: PHHO2005CA11017

PATIENT
  Sex: Female

DRUGS (17)
  1. SANDOSTATIN LAR [Suspect]
     Indication: CARCINOID TUMOUR
     Dosage: 30MG , EVERY 4 WEEKS
     Route: 030
     Dates: start: 20050222
  2. PREVACID [Concomitant]
  3. OXYCET [Concomitant]
  4. APO-AMITRIPTYLINE [Concomitant]
  5. VENTOLIN HFA [Concomitant]
  6. FLORENT [Concomitant]
  7. OPIOIDS [Suspect]
  8. GABAPENTIN [Concomitant]
  9. MAXALT [Concomitant]
  10. RABEPRAZOLE SODIUM [Concomitant]
  11. MORPHINE [Concomitant]
  12. CLORAZEPATE DIPOTASSIUM [Concomitant]
  13. SANDOSTATIN LAR [Suspect]
     Dosage: 30 MG, EVERY 3 WEEKS
     Route: 030
     Dates: start: 20050222
  14. PRILOSEC [Concomitant]
  15. SYNTHROID [Concomitant]
  16. GLYBURIDE [Concomitant]
     Indication: BLOOD GLUCOSE ABNORMAL
  17. OXYCONTIN [Concomitant]

REACTIONS (25)
  - INSOMNIA [None]
  - PAIN IN EXTREMITY [None]
  - MUSCULOSKELETAL DISORDER [None]
  - BALANCE DISORDER [None]
  - HYPERHIDROSIS [None]
  - HYPERTENSION [None]
  - DRUG INTOLERANCE [None]
  - SENSORY LOSS [None]
  - FALL [None]
  - FLUSHING [None]
  - FATIGUE [None]
  - DEPRESSION [None]
  - ANXIETY [None]
  - HEART RATE INCREASED [None]
  - WEIGHT INCREASED [None]
  - STRESS [None]
  - INJECTION SITE HAEMORRHAGE [None]
  - TYPE 1 DIABETES MELLITUS [None]
  - BLOOD GLUCOSE ABNORMAL [None]
  - OEDEMA PERIPHERAL [None]
  - BLOOD CORTISOL DECREASED [None]
  - ASTHENIA [None]
  - MEMORY IMPAIRMENT [None]
  - ADRENAL DISORDER [None]
  - MIGRAINE [None]
